FAERS Safety Report 5102079-0 (Version None)
Quarter: 2006Q3

REPORT INFORMATION
  Report Type: 
  Country: None (occurrence: None)
  Receive Date: 20060911
  Receipt Date: 20060830
  Transmission Date: 20061208
  Serious: Yes (Hospitalization)
  Sender: FDA-Public Use
  Company Number: IT-MERCK-0609ITA00002

PATIENT
  Age: 67 Year
  Sex: Male

DRUGS (8)
  1. PRIMAXIN [Suspect]
     Indication: DIABETIC FOOT INFECTION
     Route: 042
  2. PRIMAXIN [Suspect]
     Route: 042
  3. PRIMAXIN [Suspect]
     Indication: WOUND INFECTION PSEUDOMONAS
     Route: 042
  4. PRIMAXIN [Suspect]
     Route: 042
  5. CEFTAZIDIME [Suspect]
     Indication: DIABETIC FOOT INFECTION
     Route: 042
  6. CEFEPIME [Suspect]
     Indication: DIABETIC FOOT INFECTION
     Route: 042
  7. COLISTIN [Concomitant]
     Indication: WOUND INFECTION PSEUDOMONAS
     Route: 041
  8. RIFAMPIN [Concomitant]
     Indication: WOUND INFECTION PSEUDOMONAS
     Route: 065

REACTIONS (3)
  - DRUG INEFFECTIVE [None]
  - OSTEOMYELITIS [None]
  - WOUND INFECTION PSEUDOMONAS [None]
